FAERS Safety Report 17650075 (Version 2)
Quarter: 2020Q2

REPORT INFORMATION
  Report Type: Spontaneous
  Country: US (occurrence: US)
  Receive Date: 20200409
  Receipt Date: 20200522
  Transmission Date: 20200713
  Serious: Yes (Life-Threatening, Hospitalization)
  Sender: FDA-Public Use
  Company Number: US-ASTRAZENECA-2020SE47773

PATIENT
  Age: 0 Day
  Sex: Male

DRUGS (5)
  1. BENADRYL [Concomitant]
     Active Substance: DIPHENHYDRAMINE HYDROCHLORIDE
  2. OMEPRAZOLE. [Concomitant]
     Active Substance: OMEPRAZOLE
  3. SYNAGIS [Suspect]
     Active Substance: PALIVIZUMAB
     Indication: ANTIVIRAL PROPHYLAXIS
     Route: 030
     Dates: start: 20200225
  4. SILDENAFIL. [Concomitant]
     Active Substance: SILDENAFIL
  5. TYLENOL [Concomitant]
     Active Substance: ACETAMINOPHEN

REACTIONS (4)
  - Gastrooesophageal reflux disease [Unknown]
  - Respiratory failure [Unknown]
  - Pulmonary hypertension [Recovering/Resolving]
  - Eating disorder [Unknown]

NARRATIVE: CASE EVENT DATE: 20191124
